FAERS Safety Report 25738317 (Version 1)
Quarter: 2025Q3

REPORT INFORMATION
  Report Type: Spontaneous
  Country: TR (occurrence: TR)
  Receive Date: 20250829
  Receipt Date: 20250829
  Transmission Date: 20251020
  Serious: Yes (Other)
  Sender: ALEXION PHARMACEUTICALS
  Company Number: TR-ASTRAZENECA-202508TUR021376TR

PATIENT
  Age: 66 Year
  Sex: Female

DRUGS (6)
  1. FASLODEX [Suspect]
     Active Substance: FULVESTRANT
     Indication: Breast cancer
     Route: 065
  2. FASLODEX [Suspect]
     Active Substance: FULVESTRANT
  3. ARIMIDEX [Suspect]
     Active Substance: ANASTROZOLE
     Indication: Breast cancer
     Route: 065
  4. PACLITAXEL [Suspect]
     Active Substance: PACLITAXEL
     Indication: Breast cancer
     Route: 065
  5. ALPELISIB [Concomitant]
     Active Substance: ALPELISIB
     Indication: PIK3CA-activated mutation
     Route: 065
  6. CARBOPLATIN [Concomitant]
     Active Substance: CARBOPLATIN
     Indication: Breast cancer
     Route: 065

REACTIONS (3)
  - Metastases to liver [Unknown]
  - PIK3CA-activated mutation [Unknown]
  - Malignant neoplasm progression [Unknown]
